FAERS Safety Report 8845329 (Version 3)
Quarter: 2013Q4

REPORT INFORMATION
  Report Type: Spontaneous
  Country: AT (occurrence: AT)
  Receive Date: 20121017
  Receipt Date: 20131126
  Transmission Date: 20140711
  Serious: Yes (Hospitalization, Other)
  Sender: FDA-Public Use
  Company Number: AT-009507513-1210AUT002933

PATIENT
  Age: 12 Year
  Sex: Male
  Weight: 38.8 kg

DRUGS (2)
  1. SINGULAIR [Suspect]
     Indication: ASTHMA
     Dosage: UNK MG, UNK
     Route: 048
     Dates: start: 20120913, end: 20120916
  2. NOVOLIZER BUDESONIDE [Concomitant]
     Indication: ASTHMA
     Dosage: 2 HUBS, UNK MG
     Route: 065
     Dates: start: 201208

REACTIONS (10)
  - Clonus [Not Recovered/Not Resolved]
  - Ataxia [Recovered/Resolved]
  - Chest pain [Recovered/Resolved]
  - Respiratory distress [Recovered/Resolved]
  - Clonic convulsion [Recovered/Resolved]
  - Clonus [Unknown]
  - Loss of consciousness [Not Recovered/Not Resolved]
  - Hyperventilation [Recovered/Resolved]
  - Dyspepsia [Recovered/Resolved]
  - Odynophagia [Recovered/Resolved]
